FAERS Safety Report 8157300-1 (Version None)
Quarter: 2012Q1

REPORT INFORMATION
  Report Type: 
  Country: None (occurrence: None)
  Receive Date: 20120222
  Receipt Date: 20120210
  Transmission Date: 20120608
  Serious: Yes (Death)
  Sender: FDA-Public Use
  Company Number: US-ROCHE-1041691

PATIENT
  Age: 4 Month
  Sex: Male

DRUGS (1)
  1. TAMIFLU [Suspect]
     Indication: INFLUENZA
     Route: 065

REACTIONS (2)
  - SUDDEN INFANT DEATH SYNDROME [None]
  - MATERNAL EXPOSURE TIMING UNSPECIFIED [None]
